FAERS Safety Report 9337781 (Version 1)
Quarter: 2013Q2

REPORT INFORMATION
  Report Type: Spontaneous
  Country: BR (occurrence: BR)
  Receive Date: 20130607
  Receipt Date: 20130607
  Transmission Date: 20140414
  Serious: Yes (Hospitalization)
  Sender: FDA-Public Use
  Company Number: BR-ASTRAZENECA-2013SE40196

PATIENT
  Age: 72 Year
  Sex: Male
  Weight: 62 kg

DRUGS (4)
  1. ATACAND HCT [Suspect]
     Indication: HYPERTENSION
     Dosage: 16/12.5MG, DAILY
     Route: 048
     Dates: start: 2009
  2. ATACAND HCT [Suspect]
     Indication: HEART RATE IRREGULAR
     Dosage: 16/12.5MG, DAILY
     Route: 048
     Dates: start: 2009
  3. AMLODIPINE [Concomitant]
     Dates: start: 2009
  4. EUTHYROX [Concomitant]
     Dates: start: 2009

REACTIONS (1)
  - Venous occlusion [Recovered/Resolved]
